FAERS Safety Report 8125153-3 (Version None)
Quarter: 2012Q1

REPORT INFORMATION
  Report Type: 
  Country: None (occurrence: None)
  Receive Date: 20120209
  Receipt Date: 20120126
  Transmission Date: 20120608
  Serious: Yes (Death)
  Sender: FDA-Public Use
  Company Number: JP-UCBSA-048454

PATIENT
  Age: 77 Year
  Sex: Female
  Weight: 52 kg

DRUGS (8)
  1. KEPPRA [Suspect]
     Dosage: AFTER MEAL
     Route: 048
     Dates: start: 20110831, end: 20110905
  2. ISOSORBIDE DINITRATE [Concomitant]
     Indication: BRAIN OEDEMA
     Dosage: DAILY DOSE 90 ML
     Route: 048
     Dates: start: 20111226, end: 20111226
  3. DEPAKENE [Concomitant]
     Indication: PARTIAL SEIZURES WITH SECONDARY GENERALISATION
     Dosage: DAILY DOSE 800 MG
     Route: 048
     Dates: end: 20111226
  4. KEPPRA [Suspect]
     Indication: PARTIAL SEIZURES WITH SECONDARY GENERALISATION
     Route: 048
     Dates: start: 20110906, end: 20111226
  5. PREDNISOLONE [Concomitant]
     Indication: BRAIN OEDEMA
     Dosage: DAILY DOSE 20 MG
     Route: 048
     Dates: start: 20111226, end: 20111226
  6. WARFARIN SODIUM [Concomitant]
     Dosage: DAILY DOSE 2MG
     Route: 048
     Dates: end: 20111226
  7. LANSOPRAZOLE [Concomitant]
     Dosage: DAILY DOSE 15 MG
     Route: 048
     Dates: end: 20111226
  8. SENNOSIDE [Concomitant]
     Dosage: DAILY DOSE 24 MG
     Route: 048
     Dates: end: 20111226

REACTIONS (2)
  - SEPSIS [None]
  - PNEUMONIA [None]
